FAERS Safety Report 18782630 (Version 1)
Quarter: 2021Q1

REPORT INFORMATION
  Report Type: Spontaneous
  Country: US (occurrence: US)
  Receive Date: 20210125
  Receipt Date: 20210125
  Transmission Date: 20210419
  Serious: No
  Sender: FDA-Public Use
  Company Number: US-ALLERGAN-2026011US

PATIENT
  Age: 77 Year
  Sex: Female

DRUGS (2)
  1. RESTASIS [Suspect]
     Active Substance: CYCLOSPORINE
     Indication: DRY EYE
     Dosage: 2 GTT, BID
     Route: 047
     Dates: start: 202002
  2. LIQUID GEL TEARS [Concomitant]
     Indication: DRY EYE
     Dosage: UNK, QHS
     Route: 047

REACTIONS (7)
  - Product storage error [Unknown]
  - Eye irritation [Recovering/Resolving]
  - Drug ineffective [Unknown]
  - Skin irritation [Recovering/Resolving]
  - Eye swelling [Not Recovered/Not Resolved]
  - Madarosis [Recovering/Resolving]
  - Skin discomfort [Not Recovered/Not Resolved]

NARRATIVE: CASE EVENT DATE: 202002
